FAERS Safety Report 10600325 (Version 1)
Quarter: 2014Q4

REPORT INFORMATION
  Report Type: Spontaneous
  Country: PT (occurrence: PT)
  Receive Date: 20141123
  Receipt Date: 20141123
  Transmission Date: 20150529
  Serious: Yes (Other)
  Sender: FDA-Public Use
  Company Number: PHHY2014PT148957

PATIENT
  Age: 33 Year
  Sex: Male

DRUGS (4)
  1. BACLOFEN. [Suspect]
     Active Substance: BACLOFEN
     Indication: POLYNEUROPATHY
  2. BACLOFEN. [Suspect]
     Active Substance: BACLOFEN
     Indication: HEREDITARY SPASTIC PARAPLEGIA
     Route: 065
  3. DIAZEPAM. [Suspect]
     Active Substance: DIAZEPAM
     Indication: HEREDITARY SPASTIC PARAPLEGIA
     Route: 065
  4. DIAZEPAM. [Suspect]
     Active Substance: DIAZEPAM
     Indication: POLYNEUROPATHY

REACTIONS (10)
  - Autonomic nervous system imbalance [Recovering/Resolving]
  - Therapeutic response decreased [Unknown]
  - Parkinsonism [Recovering/Resolving]
  - Dystonia [Recovering/Resolving]
  - Condition aggravated [Recovering/Resolving]
  - Postural reflex impairment [Recovering/Resolving]
  - Clonus [Recovering/Resolving]
  - Myoclonus [Recovering/Resolving]
  - Nervous system disorder [Recovering/Resolving]
  - Bradykinesia [Recovering/Resolving]
